FAERS Safety Report 5976654-5 (Version None)
Quarter: 2008Q4

REPORT INFORMATION
  Report Type: 
  Country: None (occurrence: None)
  Receive Date: 20081201
  Receipt Date: 20081201
  Transmission Date: 20090506
  Serious: Yes (Hospitalization, Other)
  Sender: FDA-Public Use
  Company Number: None

PATIENT
  Age: 82 Year
  Sex: Female
  Weight: 50.8029 kg

DRUGS (4)
  1. TRAMADOL HCL [Suspect]
     Indication: PAIN
     Dosage: 2    3
     Dates: start: 20030101, end: 20080101
  2. TRAMADOL HCL [Suspect]
     Indication: SPINAL COLUMN STENOSIS
     Dosage: 2    3
     Dates: start: 20030101, end: 20080101
  3. CYMBALTA [Suspect]
     Indication: PAIN
     Dosage: 1     2
     Dates: start: 20080401
  4. CYMBALTA [Suspect]
     Indication: SPINAL COLUMN STENOSIS
     Dosage: 1     2
     Dates: start: 20080401

REACTIONS (3)
  - ABDOMINAL DISCOMFORT [None]
  - ABDOMINAL PAIN [None]
  - HALLUCINATION, AUDITORY [None]
